FAERS Safety Report 7919640-8 (Version None)
Quarter: 2011Q4

REPORT INFORMATION
  Report Type: 
  Country: None (occurrence: None)
  Receive Date: 20111117
  Receipt Date: 20111107
  Transmission Date: 20120403
  Serious: Yes (Hospitalization, Other)
  Sender: FDA-Public Use
  Company Number: US-BAYER-2011-020333

PATIENT
  Age: 33 Year
  Sex: Female
  Weight: 61.224 kg

DRUGS (7)
  1. YAZ [Suspect]
     Indication: CONTRACEPTION
     Dosage: UNK
     Route: 048
     Dates: start: 20060101, end: 20090101
  2. YASMIN [Suspect]
     Indication: CONTRACEPTION
     Dosage: UNK
     Dates: start: 20060101, end: 20090101
  3. SEASONALE [Concomitant]
  4. ORTHO [Concomitant]
  5. LOESTRIN 1.5/30 [Concomitant]
  6. YAZ [Suspect]
     Indication: PREMENSTRUAL SYNDROME
  7. YASMIN [Suspect]
     Indication: PREMENSTRUAL SYNDROME

REACTIONS (7)
  - NEPHROLITHIASIS [None]
  - BILIARY COLIC [None]
  - CHOLELITHIASIS [None]
  - MENSTRUAL DISORDER [None]
  - ANXIETY [None]
  - PAIN [None]
  - GALLBLADDER POLYP [None]
